FAERS Safety Report 25939006 (Version 1)
Quarter: 2025Q4

REPORT INFORMATION
  Report Type: Spontaneous
  Country: CN (occurrence: CN)
  Receive Date: 20251019
  Receipt Date: 20251019
  Transmission Date: 20260117
  Serious: Yes (Hospitalization)
  Sender: GE HEALTHCARE
  Company Number: None

PATIENT
  Age: 76 Year
  Sex: Female
  Weight: 46 kg

DRUGS (1)
  1. VISIPAQUE [Suspect]
     Active Substance: IODIXANOL
     Indication: Computerised tomogram thorax
     Dosage: 23 GM, TOTAL
     Route: 041
     Dates: start: 20251002

REACTIONS (7)
  - Anal incontinence [Recovering/Resolving]
  - Urinary incontinence [Recovering/Resolving]
  - Loss of consciousness [Recovering/Resolving]
  - Respiratory arrest [Recovering/Resolving]
  - Dizziness [Recovering/Resolving]
  - Vomiting [Recovering/Resolving]
  - Nausea [Recovering/Resolving]

NARRATIVE: CASE EVENT DATE: 20251002
